FAERS Safety Report 13046291 (Version 7)
Quarter: 2017Q3

REPORT INFORMATION
  Report Type: Report from Study
  Country: US (occurrence: US)
  Receive Date: 20161220
  Receipt Date: 20170801
  Transmission Date: 20171127
  Serious: Yes (Hospitalization)
  Sender: FDA-Public Use
  Company Number: US-JNJFOC-20161215515

PATIENT
  Age: 18 Year
  Sex: Male
  Weight: 87.09 kg

DRUGS (1)
  1. REMICADE [Suspect]
     Active Substance: INFLIXIMAB
     Indication: CROHN^S DISEASE
     Route: 042
     Dates: start: 20091230

REACTIONS (4)
  - Crohn^s disease [Recovered/Resolved]
  - Perineal injury [Recovered/Resolved]
  - Pelvic abscess [Recovered/Resolved]
  - Impaired healing [Recovered/Resolved]

NARRATIVE: CASE EVENT DATE: 20160830
